FAERS Safety Report 12387262 (Version 4)
Quarter: 2016Q2

REPORT INFORMATION
  Report Type: Report from Study
  Country: GB (occurrence: GB)
  Receive Date: 20160519
  Receipt Date: 20160620
  Transmission Date: 20160815
  Serious: Yes (Hospitalization, Other)
  Sender: FDA-Public Use
  Company Number: GB-TAKEDA-2016MPI004338

PATIENT
  Age: 69 Year
  Sex: Female
  Weight: 44 kg

DRUGS (1)
  1. IXAZOMIB [Suspect]
     Active Substance: IXAZOMIB
     Indication: PLASMA CELL MYELOMA
     Dosage: 4 MG, UNK
     Route: 048
     Dates: start: 20141114, end: 20160506

REACTIONS (1)
  - Pneumococcal sepsis [Recovered/Resolved]

NARRATIVE: CASE EVENT DATE: 20160512
